FAERS Safety Report 4897092-2 (Version None)
Quarter: 2006Q1

REPORT INFORMATION
  Report Type: 
  Country: None (occurrence: None)
  Receive Date: 20060127
  Receipt Date: 20060116
  Transmission Date: 20060701
  Serious: Yes (Life-Threatening)
  Sender: FDA-Public Use
  Company Number: 2006RR-01507

PATIENT
  Age: 81 Year
  Sex: Male
  Weight: 80 kg

DRUGS (8)
  1. IBUPROFEN [Suspect]
     Dosage: 5%
  2. ASPIRIN [Suspect]
     Dosage: 75 MG, QD, ORAL
     Route: 048
  3. WARFARIN (WARFARIN) [Suspect]
     Dosage: 7 MG, QD, ORAL
     Route: 048
  4. ISOSORBIDE MONONITRATE [Concomitant]
  5. LISINOPRIL TABLET 10 MG (LISINOPRIL) TABLET, 10 MG [Concomitant]
  6. NIFEDIPINE (NIFEDIPINE) TABLET [Concomitant]
  7. FRUSEMIDE (FUROSEMIDE) TABLET [Concomitant]
  8. DIGOXIN [Concomitant]

REACTIONS (2)
  - GASTRIC ULCER [None]
  - GASTROINTESTINAL HAEMORRHAGE [None]
